FAERS Safety Report 6295934-X (Version None)
Quarter: 2009Q3

REPORT INFORMATION
  Report Type: 
  Country: None (occurrence: None)
  Receive Date: 20090804
  Receipt Date: 20090723
  Transmission Date: 20100115
  Serious: Yes (Other)
  Sender: FDA-Public Use
  Company Number: PT-JNJFOC-20090708408

PATIENT
  Sex: Female

DRUGS (1)
  1. REMICADE [Suspect]
     Indication: INFLAMMATORY BOWEL DISEASE
     Dosage: RECEIVED 1 OR 2 INFUSIONS ABOUT 1 YEAR AGO
     Route: 042

REACTIONS (2)
  - BREAST NEOPLASM [None]
  - MALAISE [None]
